FAERS Safety Report 7875609-3 (Version None)
Quarter: 2011Q4

REPORT INFORMATION
  Report Type: 
  Country: None (occurrence: None)
  Receive Date: 20111031
  Receipt Date: 20111020
  Transmission Date: 20120403
  Serious: Yes (Hospitalization)
  Sender: FDA-Public Use
  Company Number: DE-SANOFI-AVENTIS-2011SA026552

PATIENT
  Sex: Female
  Weight: 54 kg

DRUGS (15)
  1. OXALIPLATIN [Suspect]
     Route: 042
     Dates: start: 20110421, end: 20110421
  2. SULFASALAZINE [Concomitant]
     Indication: ENTERITIS
     Route: 048
     Dates: start: 20110418
  3. MUTAFLOR [Concomitant]
     Indication: GASTROINTESTINAL INFLAMMATION
     Dosage: 500 MILLION BACTERIA OF E.CHOLI
     Route: 048
     Dates: start: 20110429, end: 20110504
  4. MUTAFLOR [Concomitant]
     Dosage: 500 MILLION BACTERIA OF E.CHOLI
     Route: 048
     Dates: start: 20110511, end: 20110516
  5. THERAPEUTIC RADIOPHARMACEUTICALS [Suspect]
     Indication: RECTAL CANCER
     Dosage: 28 FRACTIONS OF 1.8 GY, TOTAL DOSE 50.4 GY
     Route: 065
     Dates: start: 20110321, end: 20110426
  6. SMECTITE [Concomitant]
     Dosage: DOSE : 797 MG AND 87 MG
     Route: 048
     Dates: start: 20110503, end: 20110504
  7. ADDEL N ^BAXTER^ [Concomitant]
     Indication: MALNUTRITION
     Route: 042
     Dates: start: 20110428, end: 20110513
  8. OXALIPLATIN [Suspect]
     Indication: RECTAL CANCER
     Route: 042
     Dates: start: 20110322, end: 20110322
  9. MULTI-VITAMINS [Concomitant]
     Indication: MALNUTRITION
     Route: 042
     Dates: start: 20110428, end: 20110513
  10. ZOFRAN [Concomitant]
     Route: 042
     Dates: start: 20110427, end: 20110513
  11. CAPECITABINE [Suspect]
     Indication: RECTAL CANCER
     Route: 048
     Dates: start: 20110328, end: 20110426
  12. SMECTITE [Concomitant]
     Route: 048
     Dates: start: 20110418, end: 20110422
  13. LIPID EMULSION [Concomitant]
     Indication: MALNUTRITION
     Dosage: 1100 KCAL
     Route: 042
     Dates: start: 20110428, end: 20110513
  14. METOPROLOL [Concomitant]
     Route: 048
  15. ZOFRAN [Concomitant]
     Indication: NAUSEA
     Route: 042
     Dates: start: 20110427, end: 20110513

REACTIONS (8)
  - GASTROOESOPHAGEAL REFLUX DISEASE [None]
  - DEHYDRATION [None]
  - GASTRITIS EROSIVE [None]
  - VOMITING [None]
  - DECREASED APPETITE [None]
  - DEVICE RELATED INFECTION [None]
  - DIARRHOEA [None]
  - LOWER GASTROINTESTINAL HAEMORRHAGE [None]
